FAERS Safety Report 24972820 (Version 1)
Quarter: 2025Q1

REPORT INFORMATION
  Report Type: Spontaneous
  Country: US (occurrence: US)
  Receive Date: 20250215
  Receipt Date: 20250215
  Transmission Date: 20250409
  Serious: Yes (Hospitalization, Other)
  Sender: LUPIN
  Company Number: US-LUPIN PHARMACEUTICALS INC.-2025-01512

PATIENT
  Age: 13 Year
  Sex: Male
  Weight: 25 kg

DRUGS (54)
  1. SULFAMETHOXAZOLE\TRIMETHOPRIM [Suspect]
     Active Substance: SULFAMETHOXAZOLE\TRIMETHOPRIM
     Indication: Pneumocystis jirovecii pneumonia
     Route: 065
     Dates: start: 20210309, end: 20210325
  2. SULFAMETHOXAZOLE\TRIMETHOPRIM [Suspect]
     Active Substance: SULFAMETHOXAZOLE\TRIMETHOPRIM
     Route: 050
     Dates: start: 20210326
  3. TACROLIMUS [Suspect]
     Active Substance: TACROLIMUS
     Indication: Immunosuppressant drug therapy
     Dosage: 1.25 MG, BID
     Route: 065
     Dates: start: 20210312, end: 20210314
  4. TACROLIMUS [Suspect]
     Active Substance: TACROLIMUS
     Dosage: 1.25 MG, SINGLE
     Route: 065
     Dates: start: 20210315, end: 20210315
  5. TACROLIMUS [Suspect]
     Active Substance: TACROLIMUS
     Dosage: 1 MG, SINGLE
     Route: 065
     Dates: start: 20210315, end: 20210315
  6. TACROLIMUS [Suspect]
     Active Substance: TACROLIMUS
     Dosage: 1 MG, BID
     Route: 065
     Dates: start: 20210316, end: 20210324
  7. TACROLIMUS [Suspect]
     Active Substance: TACROLIMUS
     Dosage: 0.8 MG, SINGLE
     Route: 065
     Dates: start: 20210325, end: 20210325
  8. TACROLIMUS [Suspect]
     Active Substance: TACROLIMUS
     Dosage: 1 MG, SINGLE
     Route: 065
     Dates: start: 20210325, end: 20210325
  9. TACROLIMUS [Suspect]
     Active Substance: TACROLIMUS
     Dosage: 0.8 MG, BID
     Route: 065
     Dates: start: 20210326, end: 20210404
  10. TACROLIMUS [Suspect]
     Active Substance: TACROLIMUS
     Dosage: 0.6 MG, BID
     Route: 065
     Dates: start: 20210405, end: 20210407
  11. TACROLIMUS [Suspect]
     Active Substance: TACROLIMUS
     Dosage: 0.6 MG, SINGLE
     Route: 065
     Dates: start: 20210408, end: 20210408
  12. TACROLIMUS [Suspect]
     Active Substance: TACROLIMUS
     Dosage: 0.7 MG, SINGLE
     Route: 065
     Dates: start: 20210408, end: 20210408
  13. TACROLIMUS [Suspect]
     Active Substance: TACROLIMUS
     Dosage: 0.7 MG, BID
     Route: 065
     Dates: start: 20210409, end: 20210419
  14. TACROLIMUS [Suspect]
     Active Substance: TACROLIMUS
     Dosage: 0.7 MG, SINGLE
     Route: 065
     Dates: start: 20210420, end: 20210420
  15. TACROLIMUS [Suspect]
     Active Substance: TACROLIMUS
     Dosage: 0.55 MG, SINGLE
     Route: 065
     Dates: start: 20210420, end: 20210420
  16. TACROLIMUS [Suspect]
     Active Substance: TACROLIMUS
     Dosage: 0.55 MG, BID
     Route: 065
     Dates: start: 20210421
  17. PREDNISOLONE [Suspect]
     Active Substance: PREDNISOLONE
     Indication: Immunosuppressant drug therapy
     Dosage: 12.3 MG, QD
     Route: 065
     Dates: start: 20210312, end: 20210325
  18. PREDNISOLONE [Suspect]
     Active Substance: PREDNISOLONE
     Dosage: 8.7 MG, QD
     Route: 065
     Dates: start: 20210326, end: 20210408
  19. PREDNISOLONE [Suspect]
     Active Substance: PREDNISOLONE
     Dosage: 4.8 MG, QD
     Route: 065
     Dates: start: 20210409, end: 20210517
  20. PREDNISOLONE [Suspect]
     Active Substance: PREDNISOLONE
     Dosage: 13.5 MG, QD
     Route: 065
     Dates: start: 20210518, end: 20210521
  21. SIROLIMUS [Suspect]
     Active Substance: SIROLIMUS
     Indication: Immunosuppressant drug therapy
     Dosage: 0.92 MG, TID
     Route: 065
     Dates: start: 20210309, end: 20210309
  22. SIROLIMUS [Suspect]
     Active Substance: SIROLIMUS
     Dosage: 0.2 MG, BID
     Route: 065
     Dates: start: 20210310, end: 20210312
  23. SIROLIMUS [Suspect]
     Active Substance: SIROLIMUS
     Dosage: 0.1 MG, BID
     Route: 065
     Dates: start: 20210313, end: 20210319
  24. SIROLIMUS [Suspect]
     Active Substance: SIROLIMUS
     Dosage: 0.15 MG, BID
     Route: 065
     Dates: start: 20210320, end: 20210419
  25. SIROLIMUS [Suspect]
     Active Substance: SIROLIMUS
     Dosage: 0.15 MG, SINGLE
     Route: 065
     Dates: start: 20210420, end: 20210420
  26. SIROLIMUS [Suspect]
     Active Substance: SIROLIMUS
     Dosage: 0.12 MG, SINGLE
     Route: 065
     Dates: start: 20210420, end: 20210420
  27. SIROLIMUS [Suspect]
     Active Substance: SIROLIMUS
     Dosage: 0.12 MG, BID
     Route: 065
     Dates: start: 20210421, end: 20210426
  28. SIROLIMUS [Suspect]
     Active Substance: SIROLIMUS
     Dosage: 0.12 MG, SINGLE
     Route: 065
     Dates: start: 20210427, end: 20210427
  29. SIROLIMUS [Suspect]
     Active Substance: SIROLIMUS
     Dosage: 0.1 MG, SINGLE
     Route: 065
     Dates: start: 20210427, end: 20210427
  30. SIROLIMUS [Suspect]
     Active Substance: SIROLIMUS
     Dosage: 0.1 MG, BID
     Route: 065
     Dates: start: 20210428
  31. DEXAMETHASONE [Suspect]
     Active Substance: DEXAMETHASONE
     Indication: Mouth ulceration
     Route: 048
     Dates: start: 20210420, end: 20210505
  32. DEXAMETHASONE [Suspect]
     Active Substance: DEXAMETHASONE
     Indication: Anaesthesia
     Dosage: 8 MG, SINGLE
     Route: 042
     Dates: start: 20210428, end: 20210428
  33. DEXAMETHASONE [Suspect]
     Active Substance: DEXAMETHASONE
     Dosage: 18 MG, SINGLE
     Route: 042
     Dates: start: 20210512, end: 20210512
  34. DEXAMETHASONE [Suspect]
     Active Substance: DEXAMETHASONE
     Dosage: 2 MG, QD
     Route: 065
     Dates: start: 20210522
  35. DIPHENHYDRAMINE [Concomitant]
     Active Substance: DIPHENHYDRAMINE
     Indication: Product used for unknown indication
     Route: 065
     Dates: start: 20090214
  36. IBUPROFEN [Concomitant]
     Active Substance: IBUPROFEN
     Indication: Product used for unknown indication
     Route: 065
     Dates: start: 2011
  37. FAMOTIDINE [Concomitant]
     Active Substance: FAMOTIDINE
     Indication: Product used for unknown indication
     Route: 065
     Dates: start: 202009
  38. GABAPENTIN [Concomitant]
     Active Substance: GABAPENTIN
     Indication: Product used for unknown indication
     Route: 065
     Dates: start: 2014
  39. OMEPRAZOLE [Concomitant]
     Active Substance: OMEPRAZOLE
     Indication: Product used for unknown indication
     Route: 065
     Dates: start: 2018
  40. UBIDECARENONE [Concomitant]
     Active Substance: UBIDECARENONE
     Indication: Product used for unknown indication
     Route: 065
     Dates: start: 2014
  41. RIBOFLAVIN [Concomitant]
     Active Substance: RIBOFLAVIN
     Indication: Product used for unknown indication
     Route: 065
     Dates: start: 2014
  42. POTASSIUM CHLORIDE [Concomitant]
     Active Substance: POTASSIUM CHLORIDE
     Indication: Product used for unknown indication
     Route: 065
     Dates: start: 2012
  43. MONTELUKAST SODIUM [Concomitant]
     Active Substance: MONTELUKAST SODIUM
     Indication: Product used for unknown indication
     Route: 065
     Dates: start: 2017
  44. HUMAN IMMUNOGLOBULIN G [Concomitant]
     Active Substance: HUMAN IMMUNOGLOBULIN G
     Indication: Product used for unknown indication
     Route: 065
     Dates: start: 201208
  45. ACETAMINOPHEN [Concomitant]
     Active Substance: ACETAMINOPHEN
     Indication: Product used for unknown indication
     Route: 065
     Dates: start: 2011
  46. CHOLECALCIFEROL [Concomitant]
     Active Substance: CHOLECALCIFEROL
     Indication: Product used for unknown indication
     Route: 065
     Dates: start: 2012
  47. LACTOBACILLUS ACIDOPHILUS [Concomitant]
     Active Substance: LACTOBACILLUS ACIDOPHILUS
     Indication: Product used for unknown indication
     Route: 065
     Dates: start: 20091119
  48. EMLA [Concomitant]
     Active Substance: LIDOCAINE\PRILOCAINE
     Indication: Product used for unknown indication
     Route: 065
     Dates: start: 200902
  49. MENAQUINONE-7 [Concomitant]
     Indication: Product used for unknown indication
     Route: 065
     Dates: start: 2012
  50. HEPARIN [Concomitant]
     Active Substance: HEPARIN SODIUM
     Indication: Product used for unknown indication
     Route: 065
     Dates: start: 2011
  51. METHYLPREDNISOLONE [Concomitant]
     Active Substance: METHYLPREDNISOLONE
     Indication: Immunosuppressant drug therapy
     Route: 065
     Dates: start: 20210311
  52. IDURSULFASE [Concomitant]
     Active Substance: IDURSULFASE
     Indication: Product used for unknown indication
     Route: 065
     Dates: start: 2011
  53. SODIUM CHLORIDE [Concomitant]
     Active Substance: SODIUM CHLORIDE
     Indication: Product used for unknown indication
     Route: 065
     Dates: start: 201208
  54. MUPIROCIN [Concomitant]
     Active Substance: MUPIROCIN
     Indication: Product used for unknown indication
     Route: 065
     Dates: start: 20200710

REACTIONS (9)
  - Myoclonus [Recovered/Resolved]
  - Dysphagia [Recovered/Resolved]
  - Abdominal pain [Recovered/Resolved]
  - Oral candidiasis [Recovered/Resolved]
  - Stomatitis [Recovered/Resolved]
  - VIIth nerve injury [Recovered/Resolved]
  - Periorbital oedema [Recovered/Resolved]
  - Somnolence [Recovered/Resolved]
  - Cushingoid [Not Recovered/Not Resolved]

NARRATIVE: CASE EVENT DATE: 20210406
